FAERS Safety Report 12488846 (Version 1)
Quarter: 2016Q2

REPORT INFORMATION
  Report Type: Spontaneous
  Country: IT (occurrence: IT)
  Receive Date: 20160622
  Receipt Date: 20160622
  Transmission Date: 20160815
  Serious: Yes (Other)
  Sender: FDA-Public Use
  Company Number: IT-PFIZER INC-2016306433

PATIENT
  Age: 38 Year
  Sex: Female

DRUGS (2)
  1. NORMAST [Concomitant]
     Indication: SCIATICA
     Dosage: 1 DOSE, DAILY
     Route: 048
     Dates: start: 20160515, end: 20160601
  2. BASSADO [Suspect]
     Active Substance: DOXYCYCLINE HYCLATE
     Indication: INFECTION
     Dosage: 2 DOSE, DAILY
     Route: 048
     Dates: start: 20160529, end: 20160601

REACTIONS (2)
  - Palatal oedema [Recovering/Resolving]
  - Tongue oedema [Recovering/Resolving]

NARRATIVE: CASE EVENT DATE: 20160601
